FAERS Safety Report 18906274 (Version 1)
Quarter: 2021Q1

REPORT INFORMATION
  Report Type: Report from Study
  Country: US (occurrence: US)
  Receive Date: 20210217
  Receipt Date: 20210217
  Transmission Date: 20210420
  Serious: No
  Sender: FDA-Public Use
  Company Number: US-SUNOVION-2021SUN000296

PATIENT
  Age: 75 Year
  Sex: Male

DRUGS (7)
  1. KYNMOBI [Suspect]
     Active Substance: APOMORPHINE HYDROCHLORIDE
     Dosage: 10 MG
     Route: 060
     Dates: start: 20210129
  2. KYNMOBI [Suspect]
     Active Substance: APOMORPHINE HYDROCHLORIDE
     Dosage: 15 MG
     Route: 060
  3. CARBIDOPA/LEVODOPA [Concomitant]
     Active Substance: CARBIDOPA\LEVODOPA
     Dosage: UNK
     Route: 048
     Dates: start: 20210204
  4. KYNMOBI [Suspect]
     Active Substance: APOMORPHINE HYDROCHLORIDE
     Dosage: 25 MG
     Route: 060
     Dates: start: 20210209
  5. CARBIDOPA/LEVODOPA [Concomitant]
     Active Substance: CARBIDOPA\LEVODOPA
     Dosage: UNK
     Route: 048
     Dates: start: 20210129
  6. KYNMOBI [Suspect]
     Active Substance: APOMORPHINE HYDROCHLORIDE
     Dosage: 20 MG
     Route: 060
     Dates: start: 20210204
  7. CARBIDOPA/LEVODOPA [Concomitant]
     Active Substance: CARBIDOPA\LEVODOPA
     Dosage: UNK
     Route: 048
     Dates: start: 20210211

REACTIONS (9)
  - Muscle twitching [Recovering/Resolving]
  - Blood pressure increased [Unknown]
  - Product residue present [Unknown]
  - Dysarthria [Not Recovered/Not Resolved]
  - Bradykinesia [Not Recovered/Not Resolved]
  - Nocturia [Unknown]
  - Dyskinesia [Recovering/Resolving]
  - Somnolence [Unknown]
  - Dysgeusia [Unknown]

NARRATIVE: CASE EVENT DATE: 20210129
